FAERS Safety Report 4846220-3 (Version None)
Quarter: 2005Q4

REPORT INFORMATION
  Report Type: 
  Country: None (occurrence: None)
  Receive Date: 20051201
  Receipt Date: 20051118
  Transmission Date: 20060501
  Serious: Yes (Hospitalization, Disabling)
  Sender: FDA-Public Use
  Company Number: 02100-JPN-05-0531

PATIENT
  Age: 76 Year
  Sex: Male

DRUGS (8)
  1. CILOSTAZOL [Suspect]
     Indication: CEREBRAL INFARCTION
     Dosage: 100 MG, ORAL
     Route: 048
     Dates: start: 20040201, end: 20051007
  2. CILOSTAZOL [Suspect]
     Indication: CEREBRAL INFARCTION
     Dosage: 100 MG, ORAL
     Route: 048
     Dates: start: 20051031
  3. MECOBALAMIN [Concomitant]
  4. EMEDASTINE FUMARATE [Concomitant]
  5. FLUTICASONE PROPIONATE [Concomitant]
  6. CLOMIPRAMINE HCL [Concomitant]
  7. THEOPHYLLINE [Concomitant]
  8. PRANLUKAST [Concomitant]

REACTIONS (2)
  - CEREBRAL HAEMORRHAGE [None]
  - HEMIPLEGIA [None]
